FAERS Safety Report 7767364-2 (Version None)
Quarter: 2011Q3

REPORT INFORMATION
  Report Type: 
  Country: None (occurrence: None)
  Receive Date: 20110922
  Receipt Date: 20100830
  Transmission Date: 20111222
  Serious: Yes (Other)
  Sender: FDA-Public Use
  Company Number: US-ASTRAZENECA-2008UW01145

PATIENT
  Age: 18713 Day
  Sex: Female
  Weight: 97.5 kg

DRUGS (16)
  1. LOVASTATIN [Concomitant]
     Dates: start: 20060117
  2. ZYPREXA [Concomitant]
     Indication: BIPOLAR DISORDER
     Dates: start: 19990101, end: 20030101
  3. SEROQUEL [Suspect]
     Route: 048
     Dates: start: 20030101
  4. SEROQUEL [Suspect]
     Route: 048
     Dates: start: 20040409
  5. TRAZODONE HYDROCHLORIDE [Concomitant]
     Dates: start: 20040409
  6. SIMVASTATIN [Concomitant]
     Dates: start: 20080117
  7. HALDOL [Concomitant]
     Dates: start: 19970611
  8. LEVOBUNOLOL [Concomitant]
     Dates: start: 20040409
  9. DEPAKOTE [Concomitant]
     Dates: start: 20040409
  10. LISINOPRIL [Concomitant]
     Dates: start: 20060317
  11. HALDOL [Concomitant]
     Dates: start: 20100101
  12. LUMIGAN [Concomitant]
     Dates: start: 20040409
  13. EFFEXOR XS [Concomitant]
     Dates: start: 20060220
  14. VALPROIC ACID [Concomitant]
     Dates: start: 20060220
  15. BENADRYL [Concomitant]
     Dates: start: 20040409
  16. SEROQUEL [Suspect]
     Indication: BIPOLAR DISORDER
     Route: 048
     Dates: start: 20000201, end: 20071101

REACTIONS (5)
  - VISION BLURRED [None]
  - TYPE 2 DIABETES MELLITUS [None]
  - BLOOD CHOLESTEROL INCREASED [None]
  - HYPERLIPIDAEMIA [None]
  - DIABETIC COMPLICATION [None]
